FAERS Safety Report 25303087 (Version 1)
Quarter: 2025Q2

REPORT INFORMATION
  Report Type: Spontaneous
  Country: CN (occurrence: CN)
  Receive Date: 20250512
  Receipt Date: 20250512
  Transmission Date: 20250716
  Serious: Yes (Hospitalization, Other)
  Sender: Haleon PLC
  Company Number: CN-HALEON-2241595

PATIENT
  Age: 58 Year
  Sex: Male

DRUGS (1)
  1. DICLOFENAC [Suspect]
     Active Substance: DICLOFENAC
     Indication: Osteoarthritis

REACTIONS (12)
  - Colitis [Unknown]
  - Intestinal obstruction [Unknown]
  - Intestinal diaphragm disease [Unknown]
  - Melaena [Unknown]
  - Fatigue [Unknown]
  - Palpitations [Unknown]
  - Abdominal mass [Unknown]
  - Abdominal pain lower [Unknown]
  - Gastric ulcer [Unknown]
  - Gastritis erosive [Unknown]
  - Intestinal mucosal tear [Unknown]
  - Enteritis [Unknown]
